FAERS Safety Report 8591014-9 (Version None)
Quarter: 2012Q3

REPORT INFORMATION
  Report Type: 
  Country: None (occurrence: None)
  Receive Date: 20120813
  Receipt Date: 20120807
  Transmission Date: 20120928
  Serious: Yes (Hospitalization, Other)
  Sender: FDA-Public Use
  Company Number: US-PFIZER INC-2012192608

PATIENT
  Age: 60 Year
  Sex: Male
  Weight: 142 kg

DRUGS (3)
  1. REVATIO [Suspect]
     Indication: PULMONARY HYPERTENSION
     Dosage: 20 MG, 3X/DAY
     Route: 048
     Dates: end: 20110101
  2. REVATIO [Suspect]
     Dosage: UNK
     Route: 048
     Dates: start: 20120101
  3. REVATIO [Suspect]
     Dosage: 20 MG, 3X/DAY
     Route: 048

REACTIONS (10)
  - FLUID RETENTION [None]
  - DYSPEPSIA [None]
  - DRUG INEFFECTIVE [None]
  - INTESTINAL OBSTRUCTION [None]
  - OEDEMA PERIPHERAL [None]
  - FUNCTIONAL GASTROINTESTINAL DISORDER [None]
  - PULMONARY OEDEMA [None]
  - EXPIRED DRUG ADMINISTERED [None]
  - CONSTIPATION [None]
  - WEIGHT INCREASED [None]
